FAERS Safety Report 8191543-6 (Version None)
Quarter: 2012Q1

REPORT INFORMATION
  Report Type: 
  Country: None (occurrence: None)
  Receive Date: 20120307
  Receipt Date: 20120301
  Transmission Date: 20120608
  Serious: Yes (Other)
  Sender: FDA-Public Use
  Company Number: US-ABBOTT-12P-163-0910773-00

PATIENT
  Sex: Female
  Weight: 59.02 kg

DRUGS (1)
  1. LUPRON DEPOT [Suspect]
     Indication: ENDOMETRIOSIS
     Route: 030
     Dates: start: 20110301

REACTIONS (7)
  - CEREBROVASCULAR ACCIDENT [None]
  - HEADACHE [None]
  - HYPOAESTHESIA [None]
  - BLEPHAROSPASM [None]
  - SOMATOFORM DISORDER NEUROLOGIC [None]
  - PARALYSIS [None]
  - MUSCULAR WEAKNESS [None]
